FAERS Safety Report 11682373 (Version 1)
Quarter: 2015Q4

REPORT INFORMATION
  Report Type: Spontaneous
  Country: DE (occurrence: DE)
  Receive Date: 20151029
  Receipt Date: 20151029
  Transmission Date: 20160304
  Serious: Yes (Hospitalization, Other)
  Sender: FDA-Public Use
  Company Number: DE-009507513-1510DEU013308

PATIENT

DRUGS (2)
  1. INVANZ [Suspect]
     Active Substance: ERTAPENEM SODIUM
     Indication: ESCHERICHIA INFECTION
  2. INVANZ [Suspect]
     Active Substance: ERTAPENEM SODIUM
     Indication: PERITONITIS BACTERIAL
     Dosage: UNK

REACTIONS (3)
  - Surgery [Unknown]
  - Wound dehiscence [Unknown]
  - Drug ineffective [Unknown]
